FAERS Safety Report 8621987-7 (Version None)
Quarter: 2012Q3

REPORT INFORMATION
  Report Type: 
  Country: None (occurrence: None)
  Receive Date: 20120823
  Receipt Date: 20120823
  Transmission Date: 20120928
  Serious: Yes (Hospitalization)
  Sender: FDA-Public Use
  Company Number: None

PATIENT
  Sex: Female
  Weight: 79.6063 kg

DRUGS (13)
  1. VALPROIC ACID [Suspect]
     Indication: AFFECTIVE DISORDER
     Dosage: 1 GRAM BID PO
     Route: 048
  2. OLANZAPINE [Concomitant]
  3. MILK OF MAGNESIA TAB [Concomitant]
  4. OMEPRAZOLE [Concomitant]
  5. CLONAZEPAM [Concomitant]
  6. EUCERIN LOTION [Concomitant]
  7. RULOX PLUS SUSPENSION [Concomitant]
  8. FLUOXETINE [Concomitant]
  9. DIVALPROEX SODIUM [Concomitant]
  10. CHLORPROMAZINE HCL [Concomitant]
  11. BENZTROPINE MESYLATE [Concomitant]
  12. SENNA PLUS [Concomitant]
  13. IBUPROFEN [Concomitant]

REACTIONS (1)
  - PANCREATITIS [None]
